FAERS Safety Report 8884173 (Version 1)
Quarter: 2012Q4

REPORT INFORMATION
  Report Type: 
  Country: ES (occurrence: ES)
  Receive Date: 20121102
  Receipt Date: 20121102
  Transmission Date: 20130627
  Serious: Yes (Hospitalization)
  Sender: FDA-Public Use
  Company Number: ES-ELI_LILLY_AND_COMPANY-ES201210006838

PATIENT
  Sex: Female
  Weight: 90 kg

DRUGS (5)
  1. FORSTEO [Suspect]
     Indication: OSTEOPOROSIS
     Dosage: 20 ug, qd
     Route: 058
     Dates: start: 20120810
  2. ANASMA [Concomitant]
     Indication: ASTHMA
  3. SPIRIVA [Concomitant]
     Indication: ASTHMA
  4. DACORTIN [Concomitant]
     Indication: ASTHMA
  5. ZALDIAR [Concomitant]
     Indication: ANALGESIC THERAPY

REACTIONS (1)
  - Spinal compression fracture [Not Recovered/Not Resolved]
